FAERS Safety Report 8556511-0 (Version None)
Quarter: 2012Q3

REPORT INFORMATION
  Report Type: 
  Country: None (occurrence: None)
  Receive Date: 20120801
  Receipt Date: 20120724
  Transmission Date: 20120928
  Serious: Yes (Hospitalization)
  Sender: FDA-Public Use
  Company Number: US-UCBSA-022082

PATIENT
  Age: 49 Year
  Sex: Female
  Weight: 65 kg

DRUGS (16)
  1. CIMZIA [Suspect]
     Indication: CROHN'S DISEASE
     Route: 058
     Dates: start: 20101005
  2. BENTYL [Concomitant]
     Dosage: Q 4-6 HRS
  3. PHENERGAN HCL [Concomitant]
     Dosage: 12.5 MG
     Route: 042
  4. TRAZODONE HYDROCHLORIDE [Concomitant]
     Dosage: QHS ( EVERY NIGHT AT BED TIME)
  5. PROTONIX [Concomitant]
  6. POTASSIUM [Concomitant]
  7. PLAQUENIL [Concomitant]
  8. SODIUM CHLORIDE [Concomitant]
     Dosage: 2000 ML
     Route: 042
  9. DILAUDID [Concomitant]
     Dosage: 0.5-1 MG
     Route: 042
  10. LOMOTIL [Concomitant]
     Dosage: PRN (AS NEEDED)
  11. TOPIRAMATE [Concomitant]
  12. ROPINIROLE [Concomitant]
  13. ATIVAN [Concomitant]
     Dosage: 0.5 MG
     Route: 042
  14. EFFEXOR [Concomitant]
  15. LOVENOX [Concomitant]
  16. PHENERGAN HCL [Concomitant]

REACTIONS (2)
  - FEMUR FRACTURE [None]
  - GASTROINTESTINAL HAEMORRHAGE [None]
